FAERS Safety Report 5317987-5 (Version None)
Quarter: 2007Q2

REPORT INFORMATION
  Report Type: 
  Country: None (occurrence: None)
  Receive Date: 20070504
  Receipt Date: 20070504
  Transmission Date: 20071010
  Serious: Yes (Hospitalization)
  Sender: FDA-Public Use
  Company Number: None

PATIENT
  Age: 83 Year
  Sex: Male
  Weight: 62.5964 kg

DRUGS (5)
  1. METOPROLOL SUCCINATE [Suspect]
     Indication: ATRIAL FIBRILLATION
     Dosage: 50 MG BID PO
     Route: 048
     Dates: start: 19970101, end: 20070116
  2. METOPROLOL SUCCINATE [Suspect]
     Indication: CORONARY ARTERY DISEASE
     Dosage: 50 MG BID PO
     Route: 048
     Dates: start: 19970101, end: 20070116
  3. METOPROLOL SUCCINATE [Suspect]
     Indication: HYPERTENSION
     Dosage: 50 MG BID PO
     Route: 048
     Dates: start: 19970101, end: 20070116
  4. HYDROCHLOROTHIAZIDE [Suspect]
     Indication: HYPERTENSION
     Dosage: 12.5 MG DAILY PO
     Route: 048
     Dates: start: 20030301, end: 20070116
  5. COLCHICINE [Suspect]
     Dosage: 0.6 MG DAILY
     Dates: start: 19970101, end: 20070101

REACTIONS (3)
  - DIARRHOEA [None]
  - HYPOTENSION [None]
  - PRESYNCOPE [None]
